FAERS Safety Report 4974898-2 (Version None)
Quarter: 2006Q1

REPORT INFORMATION
  Report Type: 
  Country: None (occurrence: None)
  Receive Date: 20060227
  Receipt Date: 20060202
  Transmission Date: 20060701
  Serious: No
  Sender: FDA-Public Use
  Company Number: PHEH2005US12061

PATIENT
  Age: 85 Year
  Sex: Female

DRUGS (5)
  1. ENABLEX [Suspect]
     Indication: HYPERTONIC BLADDER
     Dosage: 7.5 MG QD ORAL
     Route: 048
     Dates: start: 20051020
  2. DALMANE [Concomitant]
  3. DULCOLAX [Concomitant]
  4. ESTRACE [Concomitant]
  5. FOSMAX (ALENDRONATE SODIUM) [Concomitant]

REACTIONS (1)
  - HEADACHE [None]
